FAERS Safety Report 8422800-3 (Version None)
Quarter: 2012Q2

REPORT INFORMATION
  Report Type: 
  Country: None (occurrence: None)
  Receive Date: 20120529
  Receipt Date: 20120511
  Transmission Date: 20120825
  Serious: Yes (Life-Threatening)
  Sender: FDA-Public Use
  Company Number: GAM-081-12-FR

PATIENT
  Age: 61 Year
  Sex: Male

DRUGS (7)
  1. OCTAGAM [Suspect]
     Indication: GUILLAIN-BARRE SYNDROME
     Dosage: 30 G (1 X 1/D), INTRAVENOUS (NOT OTHERWISE SPECIFIED)
     Route: 042
     Dates: start: 20120411, end: 20120415
  2. PREDNISOLONE [Concomitant]
  3. PRYSTINAMICIN [Concomitant]
  4. OCTAGAM [Suspect]
  5. NAPHAZOLINE HCL [Concomitant]
  6. DESLORATADINE [Concomitant]
  7. DEXTROMETHORPHAN HYDROBROMIDE [Concomitant]

REACTIONS (5)
  - CEREBRAL ISCHAEMIA [None]
  - RESPIRATORY ACIDOSIS [None]
  - CIRCULATORY COLLAPSE [None]
  - CEREBELLAR HAEMORRHAGE [None]
  - APGAR SCORE ABNORMAL [None]
